FAERS Safety Report 8223494-2 (Version None)
Quarter: 2012Q1

REPORT INFORMATION
  Report Type: 
  Country: None (occurrence: None)
  Receive Date: 20120321
  Receipt Date: 20120315
  Transmission Date: 20120608
  Serious: No
  Sender: FDA-Public Use
  Company Number: US-PFIZER INC-2012068883

PATIENT
  Sex: Female

DRUGS (3)
  1. PREMARIN [Suspect]
     Indication: URETHRAL PROLAPSE
  2. PREMARIN [Suspect]
     Indication: OFF LABEL USE
     Dosage: UNK, 1X/DAY
     Route: 067
     Dates: start: 20120314, end: 20120314
  3. SYNTHROID [Concomitant]
     Indication: HYPOTHYROIDISM
     Dosage: UNK

REACTIONS (2)
  - APPLICATION SITE IRRITATION [None]
  - HYPERSENSITIVITY [None]
